FAERS Safety Report 18606048 (Version 2)
Quarter: 2022Q2

REPORT INFORMATION
  Report Type: Spontaneous
  Country: TW (occurrence: TW)
  Receive Date: 20201211
  Receipt Date: 20220405
  Transmission Date: 20220721
  Serious: Yes (Other)
  Sender: FDA-Public Use
  Company Number: TW-PFIZER INC-2020483977

PATIENT
  Age: 57 Year
  Sex: Female

DRUGS (10)
  1. CRIZOTINIB [Suspect]
     Active Substance: CRIZOTINIB
     Indication: Metastasis
     Dosage: 250 MG, 2X/DAY (ONE CAPSULE)
     Route: 048
     Dates: start: 20171120
  2. CRIZOTINIB [Suspect]
     Active Substance: CRIZOTINIB
     Dosage: 200 MG, 2X/DAY
  3. FUROSEMIDE [Concomitant]
     Active Substance: FUROSEMIDE
     Indication: Oedema peripheral
     Dosage: 40 MG, 1X/DAY
  4. SUCRATE [Concomitant]
     Indication: Secretion discharge
     Dosage: UNK
  5. IMODIUM [Concomitant]
     Active Substance: LOPERAMIDE HYDROCHLORIDE
     Indication: Diarrhoea
     Dosage: UNK
  6. IMODIUM [Concomitant]
     Active Substance: LOPERAMIDE HYDROCHLORIDE
     Indication: Abdominal pain
  7. ESOMEPRAZOLE [Concomitant]
     Active Substance: ESOMEPRAZOLE
     Indication: Oesophageal ulcer
     Dosage: 40 MG, 1X/DAY
  8. DOMPERIDONE [Concomitant]
     Active Substance: DOMPERIDONE
     Dosage: 10 MG, 3X/DAY
  9. MESALAMINE [Concomitant]
     Active Substance: MESALAMINE
     Indication: Colitis
     Dosage: 1200 MG, 2X/DAY
  10. OMEPRAZOLE [Concomitant]
     Active Substance: OMEPRAZOLE
     Dosage: 40 MG, 1X/DAY

REACTIONS (4)
  - Oesophagitis ulcerative [Recovered/Resolved]
  - Colitis [Recovered/Resolved]
  - Oedema peripheral [Recovered/Resolved]
  - Hepatic function abnormal [Recovered/Resolved]
